FAERS Safety Report 25141347 (Version 1)
Quarter: 2025Q1

REPORT INFORMATION
  Report Type: Report from Study
  Country: US (occurrence: US)
  Receive Date: 20250331
  Receipt Date: 20250331
  Transmission Date: 20250408
  Serious: Yes (Other)
  Sender: BAYER HEALTHCARE PHARMACEUTICALS INC.
  Company Number: US-BAYER-2025A037826

PATIENT
  Sex: Female
  Weight: 74.376 kg

DRUGS (17)
  1. ADEMPAS [Suspect]
     Active Substance: RIOCIGUAT
     Indication: Pulmonary arterial hypertension
     Dates: start: 20240624
  2. ADEMPAS [Suspect]
     Active Substance: RIOCIGUAT
     Indication: Pulmonary arterial hypertension
     Dosage: 2.5 MG, TID
     Route: 048
  3. LEVOTHYROXINE SODIUM [Concomitant]
     Active Substance: LEVOTHYROXINE SODIUM
  4. NITROFURANTOIN [Concomitant]
     Active Substance: NITROFURANTOIN
  5. XARELTO [Concomitant]
     Active Substance: RIVAROXABAN
  6. TRAZODONE HCL [Concomitant]
     Active Substance: TRAZODONE HYDROCHLORIDE
  7. FLUOXETINE HYDROCHLORIDE [Concomitant]
     Active Substance: FLUOXETINE HYDROCHLORIDE
  8. VITAMINS [Concomitant]
     Active Substance: VITAMINS
  9. MYCOPHENOLATE MOFETIL [Concomitant]
     Active Substance: MYCOPHENOLATE MOFETIL
  10. POTASSIUM CHLORIDE [Concomitant]
     Active Substance: POTASSIUM CHLORIDE
  11. KETOCONAZOLE [Concomitant]
     Active Substance: KETOCONAZOLE
  12. TIMOLOL MALEATE [Concomitant]
     Active Substance: TIMOLOL MALEATE
  13. OPSUMIT [Concomitant]
     Active Substance: MACITENTAN
  14. OXYGEN [Concomitant]
     Active Substance: OXYGEN
  15. SIMVASTATIN [Concomitant]
     Active Substance: SIMVASTATIN
  16. FUROSEMIDE [Concomitant]
     Active Substance: FUROSEMIDE
  17. RESTASIS [Concomitant]
     Active Substance: CYCLOSPORINE

REACTIONS (3)
  - Urinary tract infection [None]
  - Hypotension [None]
  - Heart rate irregular [None]
